FAERS Safety Report 4433044-4 (Version None)
Quarter: 2004Q3

REPORT INFORMATION
  Report Type: 
  Country: None (occurrence: None)
  Receive Date: 20040721
  Receipt Date: 20030731
  Transmission Date: 20050211
  Serious: Yes (Hospitalization)
  Sender: FDA-Public Use
  Company Number: WAES 030IUSA00036

PATIENT
  Age: 68 Year
  Sex: Female

DRUGS (4)
  1. VIOXX [Suspect]
     Indication: KNEE OPERATION
     Dosage: PO
     Route: 048
  2. VIOXX [Suspect]
     Indication: OSTEOARTHRITIS
     Dosage: PO
     Route: 048
  3. COUMADIN [Concomitant]
  4. NAPROSYN [Concomitant]

REACTIONS (1)
  - GASTROINTESTINAL HAEMORRHAGE [None]
